FAERS Safety Report 5265750-6 (Version None)
Quarter: 2007Q1

REPORT INFORMATION
  Report Type: 
  Country: None (occurrence: None)
  Receive Date: 20061213
  Receipt Date: 20040122
  Transmission Date: 20070707
  Serious: Yes (Other)
  Sender: FDA-Public Use
  Company Number: 2004UW01178

PATIENT
  Age: 58 Year
  Sex: Female
  Weight: 58.514 kg

DRUGS (2)
  1. IRESSA [Suspect]
     Indication: ADENOCARCINOMA
     Dosage: 250 MG PO
     Route: 048
     Dates: start: 20030701
  2. PREMARIN [Concomitant]

REACTIONS (8)
  - BALANCE DISORDER [None]
  - DIARRHOEA [None]
  - DRY SKIN [None]
  - ERYTHEMA [None]
  - MEMORY IMPAIRMENT [None]
  - PSYCHOMOTOR SKILLS IMPAIRED [None]
  - THINKING ABNORMAL [None]
  - WEIGHT DECREASED [None]
